FAERS Safety Report 8294534 (Version 6)
Quarter: 2014Q1

REPORT INFORMATION
  Report Type: Report from Study
  Country: JP (occurrence: JP)
  Receive Date: 20111216
  Receipt Date: 20140101
  Transmission Date: 20141002
  Serious: Yes (Hospitalization, Other)
  Sender: FDA-Public Use
  Company Number: PHHY2011JP107396

PATIENT
  Age: 44 Year
  Sex: Male

DRUGS (42)
  1. LEPONEX / CLOZARIL [Suspect]
     Indication: SCHIZOPHRENIA, PARANOID TYPE
     Dosage: 12.5 MG  DAILY
     Route: 048
     Dates: start: 20111027, end: 20111027
  2. LEPONEX / CLOZARIL [Suspect]
     Dosage: 25 MG
     Route: 048
     Dates: start: 20111028, end: 20111030
  3. LEPONEX / CLOZARIL [Suspect]
     Dosage: 50 MG
     Route: 048
     Dates: start: 20111031, end: 20111102
  4. LEPONEX / CLOZARIL [Suspect]
     Dosage: 75 MG
     Route: 048
     Dates: start: 20111103, end: 20111104
  5. LEPONEX / CLOZARIL [Suspect]
     Dosage: 100 MG
     Route: 048
     Dates: start: 20111105, end: 20111106
  6. LEPONEX / CLOZARIL [Suspect]
     Dosage: 125 MG
     Route: 048
     Dates: start: 20111107, end: 20111109
  7. LEPONEX / CLOZARIL [Suspect]
     Dosage: 150MG
     Route: 048
     Dates: start: 20111110, end: 20111112
  8. LEPONEX / CLOZARIL [Suspect]
     Dosage: 175 MG
     Route: 048
     Dates: start: 20111113, end: 20111115
  9. LEPONEX / CLOZARIL [Suspect]
     Dosage: 200 MG
     Route: 048
     Dates: start: 20111116, end: 20111130
  10. LEPONEX / CLOZARIL [Suspect]
     Dosage: 150 MG
     Route: 048
     Dates: start: 20111201, end: 20111202
  11. LEPONEX / CLOZARIL [Suspect]
     Dosage: 75 MG
     Route: 048
     Dates: start: 20111203, end: 20111204
  12. LEPONEX / CLOZARIL [Suspect]
     Dosage: 25 MG, UNK
     Route: 048
     Dates: start: 20111208, end: 20120111
  13. LEPONEX / CLOZARIL [Suspect]
     Dosage: 50 MG, UNK
     Route: 048
     Dates: start: 20120112, end: 20120203
  14. LEPONEX / CLOZARIL [Suspect]
     Dosage: 75 MG, UNK
     Route: 048
     Dates: start: 20120204, end: 20120208
  15. LEPONEX / CLOZARIL [Suspect]
     Dosage: 100 MG, UNK
     Route: 048
     Dates: start: 20120209, end: 20120215
  16. LEPONEX / CLOZARIL [Suspect]
     Dosage: 125 MG, UNK
     Route: 048
     Dates: start: 20120216, end: 20120222
  17. LEPONEX / CLOZARIL [Suspect]
     Dosage: 150 MG, UNK
     Route: 048
     Dates: start: 20120223, end: 20120308
  18. LEPONEX / CLOZARIL [Suspect]
     Dosage: 175 MG, UNK
     Route: 048
     Dates: start: 20120309, end: 20120321
  19. LEPONEX / CLOZARIL [Suspect]
     Dosage: 200 MG, UNK
     Route: 048
     Dates: start: 20120322, end: 20120404
  20. LEPONEX / CLOZARIL [Suspect]
     Dosage: 225 MG, UNK
     Route: 048
     Dates: start: 20120405, end: 20120411
  21. LEPONEX / CLOZARIL [Suspect]
     Dosage: 250 MG, UNK
     Route: 048
     Dates: start: 20120412, end: 20120418
  22. LEPONEX / CLOZARIL [Suspect]
     Dosage: 275 MG, UNK
     Route: 048
     Dates: start: 20120419, end: 20120425
  23. LEPONEX / CLOZARIL [Suspect]
     Dosage: 300 MG, UNK
     Route: 048
     Dates: start: 20120426
  24. CLARITH [Concomitant]
     Dosage: 200 MG, 2 TABLETS TWICE DAILY
  25. CLARITH [Concomitant]
     Dosage: 400 UNK, UNK
     Route: 048
     Dates: start: 20111112
  26. FLOMOX [Concomitant]
     Dosage: 300 MG, 3 TABLETS DAILY
     Dates: start: 20111117, end: 20111125
  27. FLOMOX [Concomitant]
     Dosage: 100 MG, 3 TABLETS ONCE DAILY
     Dates: start: 20111216, end: 20111218
  28. FLOMOX [Concomitant]
     Dosage: 300 MG, UNK
     Route: 048
  29. CRAVIT [Concomitant]
     Dosage: 2 DF, 500 MG DAILY
     Dates: start: 20111126, end: 20111202
  30. ZITHROMAC [Concomitant]
     Dosage: 500 MG, UNK
     Route: 048
     Dates: start: 20111205, end: 20111207
  31. LIMAS [Concomitant]
     Dosage: 300 MG, UNK
     Route: 048
  32. LIMAS [Concomitant]
     Dosage: 400 MG, UNK
     Route: 048
     Dates: end: 20111203
  33. LASIX [Concomitant]
     Dosage: 20 MG, UNK
     Route: 048
     Dates: start: 20111216
  34. SODIUM VALPROATE [Concomitant]
     Indication: SCHIZOPHRENIA, PARANOID TYPE
     Dosage: 1200 MG, UNK
     Route: 048
  35. LITHIUM CARBONATE [Concomitant]
     Indication: SCHIZOPHRENIA, PARANOID TYPE
     Dosage: 800 MG, UNK
     Route: 048
     Dates: start: 20101126, end: 20111201
  36. CLONAZEPAM [Concomitant]
     Indication: SCHIZOPHRENIA, PARANOID TYPE
     Dosage: 2 MG, UNK
     Route: 048
     Dates: start: 20101228
  37. BIPERIDEN LACTATE [Concomitant]
     Dosage: 4 MG, UNK
     Route: 048
     Dates: start: 20101028, end: 20111107
  38. PANTETHINE [Concomitant]
     Dosage: 3 MG, UNK
     Route: 048
  39. MAGNESIUM OXIDE [Concomitant]
     Dosage: 2 MG, UNK
     Route: 048
  40. MAGNESIUM OXIDE [Concomitant]
     Dosage: 3 MG, UNK
     Route: 048
  41. FLUNITRAZEPAM [Concomitant]
     Indication: SCHIZOPHRENIA, PARANOID TYPE
     Dosage: 2 MG, UNK
     Route: 048
     Dates: start: 20081119
  42. BROTIZOLAM [Concomitant]
     Indication: SCHIZOPHRENIA, PARANOID TYPE
     Dosage: 0.25 MG, UNK
     Route: 048

REACTIONS (10)
  - Pyrexia [Recovered/Resolved]
  - Renal impairment [Recovered/Resolved]
  - Infection [Recovered/Resolved]
  - Psychotic disorder [Not Recovered/Not Resolved]
  - Incoherent [Not Recovered/Not Resolved]
  - Abnormal behaviour [Not Recovered/Not Resolved]
  - Tobacco interaction [Unknown]
  - White blood cell count increased [Unknown]
  - Haemoglobin decreased [Unknown]
  - Blood glucose increased [Unknown]
